FAERS Safety Report 4473471-2 (Version None)
Quarter: 2004Q3

REPORT INFORMATION
  Report Type: 
  Country: None (occurrence: None)
  Receive Date: 20040921
  Receipt Date: 20040624
  Transmission Date: 20050211
  Serious: Yes (Other)
  Sender: FDA-Public Use
  Company Number: US-JNJFOC-20040607316

PATIENT
  Sex: Male

DRUGS (1)
  1. CHILDREN'S MOTRIN COLD (IBUPROFEN/ PSEUDOEPHEDRINE HCL) SUSPENSION [Suspect]
     Indication: PYREXIA
     Dosage: ORAL
     Route: 048

REACTIONS (2)
  - CONVULSION [None]
  - DRUG INEFFECTIVE [None]
